FAERS Safety Report 19001305 (Version 3)
Quarter: 2021Q1

REPORT INFORMATION
  Report Type: Spontaneous
  Country: IN (occurrence: IN)
  Receive Date: 20210312
  Receipt Date: 20210326
  Transmission Date: 20210420
  Serious: Yes (Death, Life-Threatening, Hospitalization, Other)
  Sender: FDA-Public Use
  Company Number: IN-PFIZER INC-2021250975

PATIENT
  Age: 52 Year
  Sex: Male

DRUGS (4)
  1. FLUCONAZOLE. [Suspect]
     Active Substance: FLUCONAZOLE
     Indication: DISSEMINATED CRYPTOCOCCOSIS
     Dosage: 400 MG, 1X/DAY
     Route: 048
  2. FLUCONAZOLE. [Interacting]
     Active Substance: FLUCONAZOLE
     Indication: CRYPTOCOCCOSIS
  3. FLUCONAZOLE. [Interacting]
     Active Substance: FLUCONAZOLE
     Indication: INTERVERTEBRAL DISCITIS
  4. WARFARIN [Interacting]
     Active Substance: WARFARIN
     Indication: THROMBOSIS PROPHYLAXIS
     Dosage: UNK

REACTIONS (3)
  - Drug ineffective [Fatal]
  - Drug interaction [Unknown]
  - Coagulopathy [Unknown]
